FAERS Safety Report 15637009 (Version 1)
Quarter: 2018Q4

REPORT INFORMATION
  Report Type: Spontaneous
  Country: US (occurrence: US)
  Receive Date: 20181120
  Receipt Date: 20181120
  Transmission Date: 20190205
  Serious: No
  Sender: FDA-Public Use
  Company Number: US-SA-2018SA318126

PATIENT
  Age: 49 Year
  Sex: Female

DRUGS (5)
  1. XYZAL ALLERGY 24HR [Suspect]
     Active Substance: LEVOCETIRIZINE DIHYDROCHLORIDE
     Indication: HYPERSENSITIVITY
     Dosage: 1/2 OF A XYZAL 5 MG. TABLET IN THE MORNING AND FOLLOWS WITH ANOTHER 1/2 TABLET IN THE EVENING
     Dates: start: 2017
  2. METFORMIN [Concomitant]
     Active Substance: METFORMIN HYDROCHLORIDE
     Indication: DIABETES MELLITUS
  3. PREMARIN [Concomitant]
     Active Substance: ESTROGENS, CONJUGATED
     Dosage: UNK
  4. XYZAL ALLERGY 24HR [Suspect]
     Active Substance: LEVOCETIRIZINE DIHYDROCHLORIDE
     Indication: SINUS DISORDER
  5. LISINOPRIL. [Concomitant]
     Active Substance: LISINOPRIL

REACTIONS (3)
  - Respiration abnormal [Recovering/Resolving]
  - Ear discomfort [Unknown]
  - Movement disorder [Recovered/Resolved]
